FAERS Safety Report 14522368 (Version 3)
Quarter: 2018Q1

REPORT INFORMATION
  Report Type: Report from Study
  Country: US (occurrence: US)
  Receive Date: 20180212
  Receipt Date: 20180319
  Transmission Date: 20180509
  Serious: Yes (Hospitalization)
  Sender: FDA-Public Use
  Company Number: US-ACTELION-A-NJ2018-167376

PATIENT
  Age: 2 Year
  Sex: Male

DRUGS (16)
  1. WARFARIN [Concomitant]
     Active Substance: WARFARIN
  2. FUROSEMIDE. [Concomitant]
     Active Substance: FUROSEMIDE
     Dosage: 10 MG, Q12HRS
     Route: 049
  3. PREDNISONE. [Concomitant]
     Active Substance: PREDNISONE
     Dosage: 10 MG, BID
     Route: 049
  4. LEVALBUTEROL. [Concomitant]
     Active Substance: LEVALBUTEROL
     Dosage: 1.25 MG, Q6HRS, PRN
     Route: 055
  5. AMOXICILLIN. [Concomitant]
     Active Substance: AMOXICILLIN
     Dosage: 175 MG, QD
     Route: 048
  6. BACITRACIN W/POLYMYXIN B [Concomitant]
     Active Substance: BACITRACIN\POLYMYXIN B SULFATE
     Dosage: UNK, TID
     Route: 061
  7. LEVALBUTEROL. [Concomitant]
     Active Substance: LEVALBUTEROL
     Dosage: Q4-6HRS, PRN
     Route: 055
  8. TRACLEER [Suspect]
     Active Substance: BOSENTAN
     Dosage: 12.5 MG, UNK
     Route: 049
  9. BUDESONIDE. [Concomitant]
     Active Substance: BUDESONIDE
     Dosage: UNK, BID
     Route: 055
  10. TRACLEER [Suspect]
     Active Substance: BOSENTAN
     Indication: PULMONARY ARTERIAL HYPERTENSION
     Dosage: 16 MG, BID
     Route: 049
  11. ASPIRIN 81 [Concomitant]
     Active Substance: ASPIRIN
     Dosage: 36.25 MG, QD
     Route: 048
  12. REVATIO [Concomitant]
     Active Substance: SILDENAFIL CITRATE
     Dosage: 8 MG, TID
     Route: 048
  13. CHLOROTHIAZIDE. [Concomitant]
     Active Substance: CHLOROTHIAZIDE
     Dosage: 90 MG, Q12HRS
     Route: 048
  14. ENALAPRIL [Concomitant]
     Active Substance: ENALAPRIL
     Dosage: 3 MG, BID
     Route: 048
  15. FAMOTIDINE. [Concomitant]
     Active Substance: FAMOTIDINE
     Dosage: 4.8 MG, QD
     Route: 048
  16. LEVALBUTEROL. [Concomitant]
     Active Substance: LEVALBUTEROL
     Dosage: 1.25 MG, TID
     Route: 055

REACTIONS (3)
  - Bronchitis viral [Unknown]
  - Influenza [Recovering/Resolving]
  - Fluid retention [Unknown]
